FAERS Safety Report 15762581 (Version 1)
Quarter: 2018Q4

REPORT INFORMATION
  Report Type: Spontaneous
  Country: US (occurrence: US)
  Receive Date: 20181226
  Receipt Date: 20181226
  Transmission Date: 20190205
  Serious: No
  Sender: FDA-Public Use
  Company Number: US-009507513-1811USA011495

PATIENT
  Sex: Female

DRUGS (1)
  1. SIVEXTRO [Suspect]
     Active Substance: TEDIZOLID PHOSPHATE
     Indication: STAPHYLOCOCCAL INFECTION
     Dosage: 200 MILLIGRAM, ONCE
     Route: 048
     Dates: start: 20181022

REACTIONS (1)
  - Oropharyngeal candidiasis [Unknown]

NARRATIVE: CASE EVENT DATE: 2018
